FAERS Safety Report 6142727-X (Version None)
Quarter: 2009Q2

REPORT INFORMATION
  Report Type: 
  Country: None (occurrence: None)
  Receive Date: 20090402
  Receipt Date: 20090402
  Transmission Date: 20091009
  Serious: Yes (Hospitalization)
  Sender: FDA-Public Use
  Company Number: None

PATIENT
  Age: 59 Year
  Sex: Male
  Weight: 103.9 kg

DRUGS (1)
  1. IBUPROFEN [Suspect]
     Indication: OSTEOARTHRITIS
     Dosage: 800 MG TID PO
     Route: 048
     Dates: start: 19980130, end: 20090319

REACTIONS (4)
  - BLOOD PRESSURE SYSTOLIC DECREASED [None]
  - DIVERTICULUM INTESTINAL HAEMORRHAGIC [None]
  - DIZZINESS [None]
  - GASTROINTESTINAL HAEMORRHAGE [None]
